FAERS Safety Report 10260964 (Version 1)
Quarter: 2014Q2

REPORT INFORMATION
  Report Type: Spontaneous
  Country: US (occurrence: US)
  Receive Date: 20140626
  Receipt Date: 20140626
  Transmission Date: 20141212
  Serious: No
  Sender: FDA-Public Use
  Company Number: US-PFIZER INC-2014175634

PATIENT
  Age: 67 Year
  Sex: Male
  Weight: 136.5 kg

DRUGS (13)
  1. LYRICA [Suspect]
     Indication: DIABETIC NEUROPATHY
     Dosage: 100 MG, 3X/DAY
     Route: 048
     Dates: start: 201402
  2. METFORMIN [Concomitant]
     Dosage: 500 MG, 2X/DAY
  3. IMDUR [Concomitant]
     Dosage: 60 MG, 1X/DAY
  4. ATENOLOL [Concomitant]
     Dosage: 25 MG, 1X/DAY
  5. SIMVASTATIN [Concomitant]
     Dosage: 40 MG, UNK
  6. GABAPENTIN [Concomitant]
     Dosage: 600 MG, 3X/DAY
  7. FUROSEMIDE [Concomitant]
     Dosage: 40 MG, 2X/DAY
  8. FERROUS SULPHATE [Concomitant]
     Dosage: 325 MG, 1X/DAY
  9. ALPRAZOLAM [Concomitant]
     Dosage: 1 MG, 3X/DAY
  10. SERTRALINE [Concomitant]
     Dosage: 150 MG, DAILY
  11. ALLOPURINOL [Concomitant]
     Dosage: 225 MG, DAILY
  12. ASPIRIN [Concomitant]
     Dosage: 325 MG, UNK
  13. POTASSIUM CHLORIDE [Concomitant]
     Dosage: 40 MG, 1X/DAY

REACTIONS (1)
  - Pain [Unknown]
